FAERS Safety Report 6793529-2 (Version None)
Quarter: 2010Q2

REPORT INFORMATION
  Report Type: 
  Country: None (occurrence: None)
  Receive Date: 20100624
  Receipt Date: 20090218
  Transmission Date: 20101027
  Serious: No
  Sender: FDA-Public Use
  Company Number: US-PFIZER INC-2008154413

PATIENT
  Sex: Female

DRUGS (2)
  1. XALATAN [Suspect]
     Dosage: UNK
     Route: 061
     Dates: start: 20070101
  2. TRAVATAN [Suspect]
     Dosage: UNK
     Dates: start: 20080101, end: 20080101

REACTIONS (4)
  - ADVERSE DRUG REACTION [None]
  - OCULAR HYPERAEMIA [None]
  - RASH [None]
  - VISUAL ACUITY REDUCED [None]
